FAERS Safety Report 9709974 (Version 1)
Quarter: 2013Q4

REPORT INFORMATION
  Report Type: Spontaneous
  Country: GB (occurrence: GB)
  Receive Date: 20131126
  Receipt Date: 20131126
  Transmission Date: 20140711
  Serious: Yes (Other)
  Sender: FDA-Public Use
  Company Number: PHHY2013GB133636

PATIENT
  Age: 8 Year
  Sex: Male

DRUGS (2)
  1. PHENOXYMETHYLPENICILLIN [Suspect]
     Dosage: UNK
     Route: 048
  2. STRATTERA [Concomitant]
     Dosage: 40 MG, UNK

REACTIONS (9)
  - Aggression [Unknown]
  - Abnormal behaviour [Unknown]
  - Disorientation [Unknown]
  - Mydriasis [Unknown]
  - Asphyxia [Unknown]
  - Screaming [Unknown]
  - Posture abnormal [Unknown]
  - Muscle rigidity [Unknown]
  - Somnolence [Unknown]
